FAERS Safety Report 20364091 (Version 1)
Quarter: 2022Q1

REPORT INFORMATION
  Report Type: Spontaneous
  Country: US (occurrence: US)
  Receive Date: 20220121
  Receipt Date: 20220121
  Transmission Date: 20220424
  Serious: Yes (Death, Other)
  Sender: FDA-Public Use
  Company Number: US-INCYTE CORPORATION-2022IN000610

PATIENT

DRUGS (1)
  1. JAKAFI [Suspect]
     Active Substance: RUXOLITINIB
     Indication: Graft versus host disease
     Dosage: 5 MILLIGRAM, BID (TAKE TWO TABLETS)
     Route: 048
     Dates: start: 20210428, end: 20211023

REACTIONS (1)
  - Death [Fatal]

NARRATIVE: CASE EVENT DATE: 20211023
